FAERS Safety Report 16987099 (Version 1)
Quarter: 2019Q4

REPORT INFORMATION
  Report Type: Spontaneous
  Country: US (occurrence: US)
  Receive Date: 20191102
  Receipt Date: 20191102
  Transmission Date: 20200122
  Serious: No
  Sender: FDA-Public Use
  Company Number: US-TEVA-2019-US-1131298

PATIENT
  Age: 34 Year
  Sex: Female

DRUGS (7)
  1. COPAXONE [Suspect]
     Active Substance: GLATIRAMER ACETATE
     Indication: MULTIPLE SCLEROSIS
     Route: 058
     Dates: start: 20191002
  2. TYLENOL [Concomitant]
     Active Substance: ACETAMINOPHEN
  3. TIZANIDINE. [Concomitant]
     Active Substance: TIZANIDINE
  4. CYMBALTA [Concomitant]
     Active Substance: DULOXETINE HYDROCHLORIDE
  5. TURMERIC [Concomitant]
     Active Substance: HERBALS\TURMERIC
  6. VITAMIN B [Concomitant]
     Active Substance: VITAMIN B
  7. ADVIL [Concomitant]
     Active Substance: IBUPROFEN

REACTIONS (1)
  - Injection site pain [Not Recovered/Not Resolved]

NARRATIVE: CASE EVENT DATE: 20191028
